FAERS Safety Report 19474569 (Version 3)
Quarter: 2021Q3

REPORT INFORMATION
  Report Type: Other
  Country: JP (occurrence: JP)
  Receive Date: 20210630
  Receipt Date: 20210707
  Transmission Date: 20211014
  Serious: Yes (Other)
  Sender: FDA-Public Use
  Company Number: JP-ROCHE-2859384

PATIENT
  Age: 5 Decade
  Sex: Male

DRUGS (1)
  1. ACTEMRA [Suspect]
     Active Substance: TOCILIZUMAB
     Indication: CYTOKINE RELEASE SYNDROME
     Route: 065

REACTIONS (4)
  - Cytomegalovirus enterocolitis [Unknown]
  - Diverticulum intestinal [Unknown]
  - Rectal perforation [Unknown]
  - Off label use [Unknown]
